FAERS Safety Report 6674992-4 (Version None)
Quarter: 2010Q1

REPORT INFORMATION
  Report Type: 
  Country: None (occurrence: None)
  Receive Date: 20100331
  Receipt Date: 20091117
  Transmission Date: 20100710
  Serious: Yes (Other)
  Sender: FDA-Public Use
  Company Number: 2009274543

PATIENT
  Age: 59 Year
  Sex: Male
  Weight: 93 kg

DRUGS (2)
  1. SUTENT [Suspect]
     Indication: GASTROINTESTINAL STROMAL TUMOUR
     Dosage: 37.5 MG, 1X/DAY, ORAL
     Route: 048
     Dates: start: 20081027
  2. ASPIRIN [Concomitant]

REACTIONS (9)
  - DIARRHOEA [None]
  - DYSGEUSIA [None]
  - EPISTAXIS [None]
  - FATIGUE [None]
  - HAIR COLOUR CHANGES [None]
  - LIMB DISCOMFORT [None]
  - RASH [None]
  - RED BLOOD CELL COUNT DECREASED [None]
  - SKIN LACERATION [None]
